FAERS Safety Report 6656922-4 (Version None)
Quarter: 2010Q1

REPORT INFORMATION
  Report Type: 
  Country: None (occurrence: None)
  Receive Date: 20100329
  Receipt Date: 20100319
  Transmission Date: 20100710
  Serious: Yes (Hospitalization)
  Sender: FDA-Public Use
  Company Number: US-BRISTOL-MYERS SQUIBB COMPANY-15028707

PATIENT
  Age: 68 Year
  Sex: Male
  Weight: 62 kg

DRUGS (3)
  1. ERBITUX [Suspect]
     Indication: GASTRIC CANCER
     Dosage: CYCLE 4 DAY 8
  2. TAXOTERE [Suspect]
     Indication: GASTRIC CANCER
     Dosage: LAST DOSE RECEIVED ON:05MAR2010
     Route: 042
     Dates: start: 20091230
  3. ELOXATIN [Suspect]
     Indication: GASTRIC CANCER
     Dosage: LAST DOSE RECEIVED ON:05MAR2010
     Route: 042
     Dates: start: 20091230

REACTIONS (3)
  - CHILLS [None]
  - HYPERHIDROSIS [None]
  - PYREXIA [None]
